FAERS Safety Report 15571538 (Version 1)
Quarter: 2018Q4

REPORT INFORMATION
  Report Type: Spontaneous
  Country: CH (occurrence: CH)
  Receive Date: 20181031
  Receipt Date: 20181031
  Transmission Date: 20190205
  Serious: Yes (Other)
  Sender: FDA-Public Use
  Company Number: CH-FRESENIUS KABI-FK201811151

PATIENT
  Age: 14 Year
  Sex: Male

DRUGS (1)
  1. ZOLEDRONIC ACID (MANUFACTURER UNKNOWN) [Suspect]
     Active Substance: ZOLEDRONIC ACID
     Indication: BONE DENSITY DECREASED
     Route: 042

REACTIONS (2)
  - Myoglobinuria [Unknown]
  - Rhabdomyolysis [Unknown]
